FAERS Safety Report 9229922 (Version 1)
Quarter: 2013Q2

REPORT INFORMATION
  Report Type: Spontaneous
  Country: US (occurrence: None)
  Receive Date: 20130412
  Receipt Date: 20130412
  Transmission Date: 20140414
  Serious: No
  Sender: FDA-Public Use
  Company Number: None

PATIENT
  Age: 47 Year
  Sex: Female
  Weight: 86.4 kg

DRUGS (3)
  1. ZOLEDRONIC ACID [Suspect]
     Dosage: 21 CYCLE
     Dates: start: 20110526, end: 20121206
  2. CALCIUM CARBONATE [Suspect]
     Dates: start: 20110526, end: 20130403
  3. VITAMIN D2 [Suspect]
     Dates: start: 20110526, end: 20130403

REACTIONS (3)
  - Exostosis [None]
  - Osteonecrosis of jaw [None]
  - Erythema [None]
